FAERS Safety Report 5691510-8 (Version None)
Quarter: 2008Q1

REPORT INFORMATION
  Report Type: 
  Country: None (occurrence: None)
  Receive Date: 20080331
  Receipt Date: 20080321
  Transmission Date: 20080703
  Serious: Yes (Death, Life-Threatening)
  Sender: FDA-Public Use
  Company Number: 18779

PATIENT
  Age: 49 Year
  Sex: Female
  Weight: 173 kg

DRUGS (4)
  1. METHOTREXATE [Suspect]
     Indication: LYMPHOMA
     Dosage: 1820 MG ONCE IV
     Route: 042
     Dates: start: 20080227, end: 20080228
  2. CYTARABINE [Concomitant]
  3. RITUXIMAB [Concomitant]
  4. LEUCOVORIN CALCIUM [Concomitant]

REACTIONS (2)
  - HYPERURICAEMIA [None]
  - RENAL FAILURE [None]
